FAERS Safety Report 7634345-9 (Version None)
Quarter: 2011Q3

REPORT INFORMATION
  Report Type: 
  Country: None (occurrence: None)
  Receive Date: 20110725
  Receipt Date: 20110506
  Transmission Date: 20111222
  Serious: Yes (Death, Hospitalization)
  Sender: FDA-Public Use
  Company Number: PHBS2007JP16519

PATIENT
  Age: 56 Year
  Sex: Male
  Weight: 81 kg

DRUGS (8)
  1. PREDNISOLONE [Suspect]
     Dosage: 40 MG/DAY
     Route: 048
     Dates: end: 20060622
  2. RABEPRAZOLE SODIUM [Concomitant]
     Dosage: 10 MG, UNK
     Route: 048
     Dates: start: 20060512, end: 20060622
  3. STEROIDS NOS [Concomitant]
     Dosage: UNK
  4. SULFAMETHOXAZOLE [Concomitant]
     Dosage: 1 G, UNK
     Route: 048
     Dates: start: 20060522, end: 20060622
  5. NEORAL [Suspect]
     Indication: NEPHRITIS
     Dosage: 150 MG, UNK
     Route: 048
     Dates: start: 20060609, end: 20060622
  6. METHYLPREDNISOLONE [Concomitant]
     Dosage: 500 MG, DAILY
  7. PREDNISOLONE [Concomitant]
     Dosage: UNK
  8. PREDNISOLONE [Suspect]
     Indication: NEPHRITIS
     Dosage: 60 MG, UNK
     Route: 048
     Dates: start: 20060522

REACTIONS (10)
  - CYTOMEGALOVIRUS ENTEROCOLITIS [None]
  - GASTRIC ULCER [None]
  - PEPTIC ULCER [None]
  - GASTROINTESTINAL HAEMORRHAGE [None]
  - HAEMATOCHEZIA [None]
  - MELAENA [None]
  - HAEMOGLOBIN DECREASED [None]
  - ANAEMIA [None]
  - ABDOMINAL PAIN [None]
  - SHOCK HAEMORRHAGIC [None]
